FAERS Safety Report 6537112-2 (Version None)
Quarter: 2010Q1

REPORT INFORMATION
  Report Type: 
  Country: None (occurrence: None)
  Receive Date: 20100110
  Receipt Date: 20091229
  Transmission Date: 20100710
  Serious: Yes (Hospitalization)
  Sender: FDA-Public Use
  Company Number: HECT-1000074

PATIENT
  Age: 73 Year
  Sex: Male

DRUGS (1)
  1. HECTOROL [Suspect]
     Indication: HYPERPARATHYROIDISM SECONDARY
     Dosage: 0.5 MCG, 5X/W, ORAL
     Route: 048

REACTIONS (1)
  - BLOOD MAGNESIUM DECREASED [None]
